FAERS Safety Report 7930210-8 (Version None)
Quarter: 2011Q4

REPORT INFORMATION
  Report Type: 
  Country: None (occurrence: None)
  Receive Date: 20111121
  Receipt Date: 20111116
  Transmission Date: 20120403
  Serious: Yes (Death)
  Sender: FDA-Public Use
  Company Number: JP-SANOFI-AVENTIS-2011SA075809

PATIENT
  Age: 61 Year
  Sex: Male

DRUGS (1)
  1. DOCETAXEL [Suspect]
     Route: 065
     Dates: start: 20080301

REACTIONS (2)
  - INTERSTITIAL LUNG DISEASE [None]
  - DYSPNOEA [None]
